FAERS Safety Report 23327957 (Version 1)
Quarter: 2023Q4

REPORT INFORMATION
  Report Type: Spontaneous
  Country: US (occurrence: US)
  Receive Date: 20231221
  Receipt Date: 20231221
  Transmission Date: 20240109
  Serious: Yes (Other)
  Sender: FDA-Public Use
  Company Number: US-KI BIOPHARMA, LLC-2023KAM00052

PATIENT

DRUGS (4)
  1. CYTOMEGALOVIRUS IMMUNE GLOBULIN INTRAVENOUS (HUMAN) [Suspect]
     Active Substance: CYTOMEGALOVIRUS IMMUNE GLOBULIN INTRAVENOUS (HUMAN)
     Indication: Cytomegalovirus colitis
  2. CYTOMEGALOVIRUS IMMUNE GLOBULIN INTRAVENOUS (HUMAN) [Suspect]
     Active Substance: CYTOMEGALOVIRUS IMMUNE GLOBULIN INTRAVENOUS (HUMAN)
     Indication: Cytomegalovirus viraemia
  3. CIDOFOVIR [Concomitant]
     Active Substance: CIDOFOVIR
  4. UNSPECIFIED INGREDIENT [Concomitant]
     Active Substance: UNSPECIFIED INGREDIENT

REACTIONS (1)
  - Drug ineffective for unapproved indication [Not Recovered/Not Resolved]
